FAERS Safety Report 9105742 (Version 1)
Quarter: 2013Q1

REPORT INFORMATION
  Report Type: Spontaneous
  Country: BR (occurrence: BR)
  Receive Date: 20130220
  Receipt Date: 20130220
  Transmission Date: 20140127
  Serious: Yes (Hospitalization)
  Sender: FDA-Public Use
  Company Number: PHHY2013BR016369

PATIENT
  Sex: Male
  Weight: 64 kg

DRUGS (9)
  1. EXELON PATCH [Suspect]
     Indication: DEMENTIA
     Dosage: 4,6 MG DAILY
     Route: 062
  2. EXELON PATCH [Suspect]
     Dosage: 9.5 MG DAILY
     Route: 062
     Dates: end: 201204
  3. EXELON [Suspect]
     Indication: DEMENTIA
     Dosage: 1.5 MG DAILY
     Route: 048
     Dates: start: 2010
  4. EXELON [Suspect]
     Dosage: 3 MG DAILY
     Route: 048
  5. EXELON [Suspect]
     Dosage: 4.5 MG DAILY
     Route: 048
     Dates: start: 201006, end: 201006
  6. MEMANTINE [Concomitant]
  7. CONCOR [Concomitant]
  8. ACETYLSALICYLIC ACID [Concomitant]
  9. LIPISTAT//ATORVASTATIN CALCIUM [Concomitant]

REACTIONS (7)
  - Haematemesis [Recovered/Resolved]
  - Haemorrhage [Recovered/Resolved]
  - Oesophageal injury [Recovering/Resolving]
  - Nausea [Recovered/Resolved]
  - Vomiting [Recovered/Resolved]
  - Dementia [Not Recovered/Not Resolved]
  - Somnolence [Recovering/Resolving]
